FAERS Safety Report 22235116 (Version 3)
Quarter: 2023Q2

REPORT INFORMATION
  Report Type: Spontaneous
  Country: CN (occurrence: CN)
  Receive Date: 20230420
  Receipt Date: 20230519
  Transmission Date: 20230722
  Serious: Yes (Other)
  Sender: FDA-Public Use
  Company Number: CN-BAXTER-2023BAX018725

PATIENT
  Age: 54 Year
  Sex: Female
  Weight: 60 kg

DRUGS (16)
  1. DEXTROSE [Suspect]
     Active Substance: DEXTROSE\DEXTROSE MONOHYDRATE
     Indication: Parenteral nutrition
     Dosage: 11% INJECTION, IVGTT 1440 ML (QD)
     Route: 042
  2. GLYCERIN\LECITHIN\MEDIUM-CHAIN TRIGLYCERIDES\SOYBEAN OIL [Suspect]
     Active Substance: GLYCERIN\LECITHIN\MEDIUM-CHAIN TRIGLYCERIDES\SOYBEAN OIL
     Dosage: (C6-24) (FAT EMULSION CONTENT 20%, 250 ML/BOTTLE) ONCE A DAY
     Route: 041
  3. AMINO ACIDS, SOURCE UNSPECIFIED [Suspect]
     Active Substance: AMINO ACIDS, SOURCE UNSPECIFIED
     Dosage: 250 ML (18AA-II) (AMINO ACID CONTENT 8.5%, 250M/BOTTLE)
     Route: 041
  4. NOREPINEPHRINE [Concomitant]
     Active Substance: NOREPINEPHRINE
     Indication: Blood pressure management
     Dosage: ADDED INTO 27.5 ML 0.9% SODIUM CHLORIDE INJECTION PUMPING
     Route: 042
  5. NOREPINEPHRINE [Concomitant]
     Active Substance: NOREPINEPHRINE
     Indication: Heart rate abnormal
  6. MORPHINE [Concomitant]
     Active Substance: MORPHINE
     Dosage: 10 MG
     Route: 058
  7. METOPROLOL [Concomitant]
     Active Substance: METOPROLOL
     Indication: Blood pressure abnormal
     Dosage: 25 MG, TID
     Route: 048
  8. AMLODIPINE BESYLATE [Concomitant]
     Active Substance: AMLODIPINE BESYLATE
     Indication: Blood pressure abnormal
     Dosage: 5 MG, QD
     Route: 048
  9. ISOSORBIDE MONONITRATE [Concomitant]
     Active Substance: ISOSORBIDE MONONITRATE
     Indication: Heart rate abnormal
     Dosage: 40 MG, ADDED INTO 30 ML OF 0.9% SODIUM CHLORIDE PUMPING
     Route: 042
  10. SODIUM CHLORIDE [Concomitant]
     Active Substance: SODIUM CHLORIDE
     Indication: Medication dilution
     Dosage: 27.5 ML OF 0.9% SODIUM CHLORIDE
     Route: 042
  11. SODIUM CHLORIDE [Concomitant]
     Active Substance: SODIUM CHLORIDE
     Dosage: 30 ML 0.9% SODIUM CHLORIDE INJECTION FOR PUMPING ONCE A DAY
     Route: 042
  12. SODIUM CHLORIDE [Concomitant]
     Active Substance: SODIUM CHLORIDE
     Dosage: 100 ML OF 0.9%SODIUM CHLORIDE INJECTION, QD
     Route: 041
  13. AMINO ACIDS, SOURCE UNSPECIFIED [Concomitant]
     Active Substance: AMINO ACIDS, SOURCE UNSPECIFIED
     Indication: Parenteral nutrition
     Dosage: FAT EMULSION
     Route: 065
  14. URAPIDIL [Concomitant]
     Active Substance: URAPIDIL
     Indication: Blood pressure abnormal
     Dosage: 100 MG URAPIDIL WAS ADDED INTO 30 ML 0.9% SODIUM CHLORIDE INJECTION FOR INTRAVENOUS PUMPING ONCE A D
     Route: 042
  15. ESMOLOL [Concomitant]
     Active Substance: ESMOLOL HYDROCHLORIDE
     Dosage: 500 MG PUMPED ONCE A DAY
     Route: 042
  16. DIISOPROPYLAMINE DICHLOROACETATE;GLUCONATE SODIUM [Concomitant]
     Dosage: 80 MG ADDED INTO 100 ML OF 0.9% SODIUM CHLORIDE INJECTION, QD
     Route: 041

REACTIONS (2)
  - Drug-induced liver injury [Recovered/Resolved]
  - Hepatic function abnormal [Recovered/Resolved]
